FAERS Safety Report 10782663 (Version 2)
Quarter: 2015Q3

REPORT INFORMATION
  Report Type: Report from Study
  Country: US (occurrence: US)
  Receive Date: 20150210
  Receipt Date: 20150803
  Transmission Date: 20151125
  Serious: Yes (Other)
  Sender: FDA-Public Use
  Company Number: US-ELI_LILLY_AND_COMPANY-US201408009967

PATIENT
  Age: 53 Year
  Sex: Female

DRUGS (10)
  1. AMLODIPINE [Interacting]
     Active Substance: AMLODIPINE BESYLATE
     Dosage: 5 MG, UNKNOWN
     Route: 065
  2. COREG [Interacting]
     Active Substance: CARVEDILOL
     Indication: HYPERTENSION
     Dosage: UNK UNK, UNKNOWN
     Route: 065
     Dates: end: 201407
  3. PAXIL [Concomitant]
     Active Substance: PAROXETINE HYDROCHLORIDE
     Indication: PRODUCT USED FOR UNKNOWN INDICATION
     Dosage: 12.5 MG, UNKNOWN
     Route: 065
  4. TERIPARATIDE [Interacting]
     Active Substance: TERIPARATIDE
     Dosage: UNK, QD
     Route: 065
     Dates: start: 20150203
  5. TERIPARATIDE [Suspect]
     Active Substance: TERIPARATIDE
     Indication: OSTEOPOROSIS
     Dosage: UNK, QD
     Route: 065
     Dates: start: 20140513
  6. TERIPARATIDE [Interacting]
     Active Substance: TERIPARATIDE
     Dosage: UNK, QD
     Route: 065
  7. TERIPARATIDE [Interacting]
     Active Substance: TERIPARATIDE
     Dosage: UNK, QD
     Route: 065
     Dates: end: 20150127
  8. TERIPARATIDE [Interacting]
     Active Substance: TERIPARATIDE
     Dosage: UNK, QD
     Route: 005
  9. VITAMIN B12 [Concomitant]
     Active Substance: CYANOCOBALAMIN
     Indication: PRODUCT USED FOR UNKNOWN INDICATION
     Route: 065
  10. AMLODIPINE [Interacting]
     Active Substance: AMLODIPINE BESYLATE
     Indication: HYPERTENSION
     Dosage: 10 MG, UNKNOWN
     Route: 065
     Dates: start: 201407

REACTIONS (29)
  - Blood pressure decreased [Unknown]
  - Photophobia [Unknown]
  - Arthralgia [Not Recovered/Not Resolved]
  - Nausea [Recovered/Resolved]
  - Nausea [Unknown]
  - Blood pressure decreased [Unknown]
  - Heart rate increased [Unknown]
  - Thinking abnormal [Unknown]
  - Injection site rash [Recovered/Resolved]
  - Amnesia [Unknown]
  - Coordination abnormal [Unknown]
  - Vitamin D decreased [Unknown]
  - Drug interaction [Unknown]
  - Drug dose omission [Unknown]
  - Drug interaction [Unknown]
  - Feeling abnormal [Unknown]
  - Migraine [Unknown]
  - Amnesia [Unknown]
  - Memory impairment [Unknown]
  - Anxiety [Unknown]
  - Pain in extremity [Unknown]
  - Aura [Recovered/Resolved]
  - Injection site erythema [Recovered/Resolved]
  - Abdominal distension [Recovered/Resolved]
  - Arthritis [Unknown]
  - Headache [Unknown]
  - Migraine [Recovered/Resolved]
  - Osteoarthritis [Unknown]
  - Muscle spasms [Recovering/Resolving]

NARRATIVE: CASE EVENT DATE: 2014
